FAERS Safety Report 5265822-6 (Version None)
Quarter: 2007Q1

REPORT INFORMATION
  Report Type: 
  Country: None (occurrence: None)
  Receive Date: 20070315
  Receipt Date: 20070306
  Transmission Date: 20070707
  Serious: Yes (Hospitalization)
  Sender: FDA-Public Use
  Company Number: JP-SP-2007-00145

PATIENT
  Sex: Female

DRUGS (2)
  1. IMMUCYST [Suspect]
     Indication: BLADDER CANCER
     Route: 065
     Dates: start: 20061115, end: 20070110
  2. IMMUCYST [Suspect]
     Route: 065
     Dates: start: 20061115, end: 20070110

REACTIONS (6)
  - ARTHRALGIA [None]
  - ARTHRITIS [None]
  - CONJUNCTIVITIS [None]
  - DYSURIA [None]
  - LIVER DISORDER [None]
  - REITER'S SYNDROME [None]
